APPROVED DRUG PRODUCT: ERYPED
Active Ingredient: ERYTHROMYCIN ETHYLSUCCINATE
Strength: EQ 400MG BASE/5ML
Dosage Form/Route: GRANULE;ORAL
Application: N050207 | Product #002 | TE Code: AB
Applicant: CARNEGIE PHARMACEUTICALS LLC
Approved: Approved Prior to Jan 1, 1982 | RLD: Yes | RS: Yes | Type: RX